FAERS Safety Report 19545904 (Version 1)
Quarter: 2021Q3

REPORT INFORMATION
  Report Type: Other
  Country: ES (occurrence: ES)
  Receive Date: 20210714
  Receipt Date: 20210714
  Transmission Date: 20211014
  Serious: Yes (Life-Threatening, Hospitalization, Other)
  Sender: FDA-Public Use
  Company Number: ES-UMEDICA-000113

PATIENT
  Age: 76 Year
  Sex: Male

DRUGS (1)
  1. OLMESARTAN/HYDROCHLOROTHIAZIDE [Suspect]
     Active Substance: HYDROCHLOROTHIAZIDE\OLMESARTAN MEDOXOMIL
     Indication: HYPERTENSION
     Dosage: 40/12.5MG/DAILY DURING 2 YEARS

REACTIONS (2)
  - Sprue-like enteropathy [Recovered/Resolved]
  - Gastrointestinal inflammation [Recovered/Resolved]
